FAERS Safety Report 21361030 (Version 3)
Quarter: 2022Q4

REPORT INFORMATION
  Report Type: Report from Study
  Country: US (occurrence: US)
  Receive Date: 20220921
  Receipt Date: 20221008
  Transmission Date: 20230112
  Serious: No
  Sender: FDA-Public Use
  Company Number: None

PATIENT
  Sex: Male

DRUGS (3)
  1. VENCLEXTA [Suspect]
     Active Substance: VENETOCLAX
     Indication: Chronic lymphocytic leukaemia recurrent
     Route: 048
  2. VENCLEXTA [Suspect]
     Active Substance: VENETOCLAX
     Indication: Chronic lymphocytic leukaemia recurrent
     Dosage: 4 TABLETS DAILY BY MOUTH WITH FOOD AND A FULL GLASS OF WATER AT APPROXIMATELY THE SAME TIME EACH DAY
     Dates: end: 20220927
  3. ALLOPURINOL [Concomitant]
     Active Substance: ALLOPURINOL
     Indication: Product used for unknown indication

REACTIONS (11)
  - Feeling abnormal [Not Recovered/Not Resolved]
  - Onychoclasis [Unknown]
  - Blood uric acid increased [Not Recovered/Not Resolved]
  - Hangnail [Unknown]
  - White blood cell count decreased [Recovering/Resolving]
  - Nail disorder [Unknown]
  - Diarrhoea [Not Recovered/Not Resolved]
  - Pain [Unknown]
  - Illness [Not Recovered/Not Resolved]
  - White blood cell count abnormal [Unknown]
  - Fatigue [Not Recovered/Not Resolved]
